FAERS Safety Report 25499794 (Version 3)
Quarter: 2025Q3

REPORT INFORMATION
  Report Type: Spontaneous
  Country: US (occurrence: US)
  Receive Date: 20250701
  Receipt Date: 20250707
  Transmission Date: 20251021
  Serious: Yes (Other)
  Sender: CHATTEM
  Company Number: US-OPELLA-2025OHG020089

PATIENT
  Age: 44 Year
  Sex: Male

DRUGS (1)
  1. XYZAL [Suspect]
     Active Substance: LEVOCETIRIZINE DIHYDROCHLORIDE
     Indication: Hypersensitivity
     Dosage: ONE XYZAL PILL PER DAY FOR OVER A YEAR
     Dates: start: 20230101

REACTIONS (7)
  - Drug dependence [Unknown]
  - Impaired work ability [Unknown]
  - Disturbance in attention [Unknown]
  - Pruritus [Unknown]
  - Insomnia [Unknown]
  - Product use issue [Unknown]
  - Rebound effect [Unknown]

NARRATIVE: CASE EVENT DATE: 20250101
